FAERS Safety Report 15231435 (Version 5)
Quarter: 2018Q3

REPORT INFORMATION
  Report Type: Report from Study
  Country: CL (occurrence: CL)
  Receive Date: 20180802
  Receipt Date: 20180920
  Transmission Date: 20181010
  Serious: Yes (Hospitalization, Other)
  Sender: FDA-Public Use
  Company Number: PHHY2018CL049699

PATIENT
  Age: 62 Year
  Sex: Female

DRUGS (11)
  1. KISQALI [Suspect]
     Active Substance: RIBOCICLIB
     Dosage: 600 MG, UNK
     Route: 048
  2. KISQALI [Suspect]
     Active Substance: RIBOCICLIB
     Indication: BREAST CANCER
     Dosage: 600 MG, UNK
     Route: 048
     Dates: start: 20180712
  3. KISQALI [Suspect]
     Active Substance: RIBOCICLIB
     Dosage: 600 MG, UNK
     Route: 048
     Dates: start: 20180808, end: 20180828
  4. FEMARA [Suspect]
     Active Substance: LETROZOLE
     Indication: BREAST CANCER
     Dosage: UNK
     Route: 065
  5. CLONEX [Concomitant]
     Indication: PRODUCT USED FOR UNKNOWN INDICATION
     Route: 065
  6. LANSOPRAZOLE. [Concomitant]
     Active Substance: LANSOPRAZOLE
     Indication: PRODUCT USED FOR UNKNOWN INDICATION
     Route: 065
  7. ANASTROZOLE. [Concomitant]
     Active Substance: ANASTROZOLE
     Indication: PRODUCT USED FOR UNKNOWN INDICATION
     Route: 065
  8. METFORMIN [Concomitant]
     Active Substance: METFORMIN HYDROCHLORIDE
     Indication: PRODUCT USED FOR UNKNOWN INDICATION
     Dosage: 750 MG, QD
     Route: 065
  9. ATORVASTATIN [Concomitant]
     Active Substance: ATORVASTATIN
     Indication: PRODUCT USED FOR UNKNOWN INDICATION
     Dosage: 10 MG, QD
     Route: 065
  10. CENTRUM [Concomitant]
     Active Substance: VITAMINS
     Indication: PRODUCT USED FOR UNKNOWN INDICATION
     Route: 065
  11. GLICENEX [Concomitant]
     Indication: INSULIN RESISTANCE
     Dosage: 750 MG, UNK
     Route: 065

REACTIONS (39)
  - Back pain [Recovering/Resolving]
  - Vision blurred [Not Recovered/Not Resolved]
  - Weight increased [Not Recovered/Not Resolved]
  - Eye pain [Unknown]
  - Yawning [Unknown]
  - Alopecia [Not Recovered/Not Resolved]
  - Nasal ulcer [Unknown]
  - Noninfective gingivitis [Recovered/Resolved]
  - Aversion [Unknown]
  - Blood pressure increased [Recovering/Resolving]
  - Keratitis [Recovering/Resolving]
  - Lung neoplasm [Recovering/Resolving]
  - Gingival erythema [Recovering/Resolving]
  - Chills [Unknown]
  - Dizziness [Not Recovered/Not Resolved]
  - Dry eye [Not Recovered/Not Resolved]
  - Pulmonary pain [Unknown]
  - Fatigue [Not Recovered/Not Resolved]
  - Visual impairment [Unknown]
  - Catheter site pain [Unknown]
  - Ligament sprain [Not Recovered/Not Resolved]
  - Fall [Unknown]
  - Amnesia [Not Recovered/Not Resolved]
  - Abdominal discomfort [Unknown]
  - Depressed mood [Recovering/Resolving]
  - Eyelid margin crusting [Unknown]
  - Herpes virus infection [Unknown]
  - Headache [Unknown]
  - Agitation [Unknown]
  - Confusional state [Unknown]
  - Diarrhoea [Recovered/Resolved]
  - Eye swelling [Not Recovered/Not Resolved]
  - Malaise [Recovering/Resolving]
  - Aphthous ulcer [Recovering/Resolving]
  - Nasopharyngitis [Unknown]
  - Eye disorder [Unknown]
  - Ankle fracture [Not Recovered/Not Resolved]
  - Feeling abnormal [Not Recovered/Not Resolved]
  - Nausea [Recovering/Resolving]

NARRATIVE: CASE EVENT DATE: 20180612
